FAERS Safety Report 20849987 (Version 2)
Quarter: 2022Q2

REPORT INFORMATION
  Report Type: Report from Study
  Country: ZA (occurrence: ZA)
  Receive Date: 20220519
  Receipt Date: 20220624
  Transmission Date: 20220720
  Serious: Yes (Life-Threatening, Other)
  Sender: FDA-Public Use
  Company Number: ZA-TAKEDA-2022TUS032514

PATIENT
  Age: 54 Year
  Sex: Male

DRUGS (1)
  1. VEDOLIZUMAB [Suspect]
     Active Substance: VEDOLIZUMAB
     Indication: Crohn^s disease
     Dosage: 300 MILLIGRAM
     Route: 042
     Dates: start: 20220406, end: 20220406

REACTIONS (1)
  - Adverse drug reaction [Unknown]
